FAERS Safety Report 26057583 (Version 1)
Quarter: 2025Q4

REPORT INFORMATION
  Report Type: Spontaneous
  Country: US (occurrence: None)
  Receive Date: 20251118
  Receipt Date: 20251118
  Transmission Date: 20260118
  Serious: No
  Sender: UCB
  Company Number: US-UCBSA-2025039340

PATIENT
  Age: 23 Year

DRUGS (5)
  1. LACOSAMIDE [Suspect]
     Active Substance: LACOSAMIDE
     Indication: Status epilepticus
     Dosage: UNK
  2. LACOSAMIDE [Suspect]
     Active Substance: LACOSAMIDE
     Indication: Off label use
  3. LEVETIRACETAM [Suspect]
     Active Substance: LEVETIRACETAM
     Indication: Status epilepticus
  4. LEVETIRACETAM [Suspect]
     Active Substance: LEVETIRACETAM
     Indication: Off label use
  5. PROPOFOL [Concomitant]
     Active Substance: PROPOFOL
     Indication: Product used for unknown indication
     Dosage: UNK

REACTIONS (1)
  - No adverse event [Unknown]
